FAERS Safety Report 9620848 (Version 1)
Quarter: 2013Q4

REPORT INFORMATION
  Report Type: Spontaneous
  Country: IT (occurrence: IT)
  Receive Date: 20131015
  Receipt Date: 20131015
  Transmission Date: 20140711
  Serious: Yes (Hospitalization)
  Sender: FDA-Public Use
  Company Number: IT-ELI_LILLY_AND_COMPANY-IT201310001965

PATIENT
  Age: 26 Year
  Sex: Female

DRUGS (5)
  1. OLANZAPINE [Suspect]
     Dosage: 10 MG, SINGLE
     Route: 048
     Dates: start: 20130927, end: 20130927
  2. XANAX [Suspect]
     Dosage: 3 MG, UNKNOWN
     Route: 065
  3. TAVOR [Suspect]
     Dosage: 2.5 MG, UNKNOWN
     Route: 065
  4. AMISULPRIDE [Suspect]
     Dosage: 1 DF, UNKNOWN
     Route: 065
  5. SERTRALINE [Suspect]
     Dosage: 1 DF, UNKNOWN
     Route: 065

REACTIONS (3)
  - Tremor [Recovering/Resolving]
  - Muscle contractions involuntary [Recovering/Resolving]
  - Extra dose administered [Recovered/Resolved]
